FAERS Safety Report 4369808-5 (Version None)
Quarter: 2004Q2

REPORT INFORMATION
  Report Type: 
  Country: None (occurrence: None)
  Receive Date: 20040527
  Receipt Date: 20040519
  Transmission Date: 20050107
  Serious: Yes (Other)
  Sender: FDA-Public Use
  Company Number: 2004033798

PATIENT
  Age: 25 Year
  Sex: Female

DRUGS (1)
  1. NICORETTE [Suspect]
     Indication: SMOKING CESSATION THERAPY
     Dosage: INHALATION
     Route: 055
     Dates: start: 20040422, end: 20040427

REACTIONS (4)
  - DRUG EXPOSURE DURING PREGNANCY [None]
  - INJURY ASPHYXIATION [None]
  - STILLBIRTH [None]
  - UMBILICAL CORD AROUND NECK [None]
